FAERS Safety Report 22000523 (Version 1)
Quarter: 2023Q1

REPORT INFORMATION
  Report Type: Spontaneous
  Country: US (occurrence: None)
  Receive Date: 20230216
  Receipt Date: 20230216
  Transmission Date: 20230417
  Serious: Yes (Other)
  Sender: FDA-Public Use
  Company Number: 2023A033718

PATIENT
  Sex: Male
  Weight: 117.9 kg

DRUGS (3)
  1. FARXIGA [Suspect]
     Active Substance: DAPAGLIFLOZIN PROPANEDIOL
     Indication: Blood glucose abnormal
     Route: 048
     Dates: start: 20230131
  2. FARXIGA [Suspect]
     Active Substance: DAPAGLIFLOZIN PROPANEDIOL
     Indication: Renal disorder
     Route: 048
     Dates: start: 20230131
  3. FARXIGA [Suspect]
     Active Substance: DAPAGLIFLOZIN PROPANEDIOL
     Indication: Cardiac disorder
     Route: 048
     Dates: start: 20230131

REACTIONS (15)
  - Ketoacidosis [Unknown]
  - Nausea [Unknown]
  - Eructation [Unknown]
  - Abdominal pain [Unknown]
  - Abnormal faeces [Unknown]
  - Hunger [Unknown]
  - Confusional state [Unknown]
  - Fatigue [Unknown]
  - Asthenia [Unknown]
  - Dizziness postural [Unknown]
  - Blood insulin decreased [Unknown]
  - Blood glucose abnormal [Unknown]
  - Glomerular filtration rate decreased [Unknown]
  - Diarrhoea [Unknown]
  - Off label use [Unknown]
